FAERS Safety Report 20305628 (Version 2)
Quarter: 2022Q1

REPORT INFORMATION
  Report Type: Spontaneous
  Country: US (occurrence: US)
  Receive Date: 20220106
  Receipt Date: 20220207
  Transmission Date: 20220423
  Serious: Yes (Other)
  Sender: FDA-Public Use
  Company Number: US-TEVA-2021-US-1995665

PATIENT
  Age: 31 Year
  Sex: Female

DRUGS (1)
  1. ROCURONIUM [Suspect]
     Active Substance: ROCURONIUM BROMIDE
     Indication: Accidental exposure to product
     Dosage: THE MAXIMUM CONTAMINATION OF THE EYE WAS DETERMINED TO BE APPROXIMATELY 50MG, BUT THE EXACT AMOUN...
     Route: 061

REACTIONS (5)
  - Facial paresis [Recovered/Resolved]
  - Vision blurred [Recovered/Resolved]
  - Discomfort [Recovered/Resolved]
  - Eyelid disorder [Recovered/Resolved]
  - Accidental exposure to product [Recovered/Resolved]
